FAERS Safety Report 7396533-9 (Version None)
Quarter: 2011Q2

REPORT INFORMATION
  Report Type: 
  Country: None (occurrence: None)
  Receive Date: 20110406
  Receipt Date: 20110330
  Transmission Date: 20111010
  Serious: Yes (Hospitalization)
  Sender: FDA-Public Use
  Company Number: US-BRISTOL-MYERS SQUIBB COMPANY-15533623

PATIENT
  Age: 65 Year
  Sex: Female

DRUGS (1)
  1. AVALIDE [Suspect]
     Indication: BLOOD PRESSURE
     Dosage: 1 DF = 300/25 MG
     Route: 048
     Dates: start: 20050119

REACTIONS (6)
  - DECREASED APPETITE [None]
  - TINNITUS [None]
  - VERTIGO [None]
  - HYPERHIDROSIS [None]
  - DIZZINESS [None]
  - DRY MOUTH [None]
